FAERS Safety Report 8170559-X (Version None)
Quarter: 2012Q1

REPORT INFORMATION
  Report Type: 
  Country: None (occurrence: None)
  Receive Date: 20120228
  Receipt Date: 20120214
  Transmission Date: 20120608
  Serious: Yes (Hospitalization, Other)
  Sender: FDA-Public Use
  Company Number: GB-PFIZER INC-2011304022

PATIENT
  Age: 92 Year
  Sex: Male

DRUGS (2)
  1. IBUPROFEN [Suspect]
     Indication: NECK PAIN
     Dosage: 400 MG, 3X/DAY
     Route: 048
     Dates: start: 20111101, end: 20111122
  2. LEVOTHYROXINE [Concomitant]
     Indication: HYPOTHYROIDISM
     Dosage: UNK
     Route: 048

REACTIONS (5)
  - DIVERTICULITIS [None]
  - ATRIAL FIBRILLATION [None]
  - GASTRITIS [None]
  - OESOPHAGITIS [None]
  - DYSPNOEA [None]
